FAERS Safety Report 8050158-0 (Version None)
Quarter: 2012Q1

REPORT INFORMATION
  Report Type: 
  Country: None (occurrence: None)
  Receive Date: 20120117
  Receipt Date: 20120111
  Transmission Date: 20120608
  Serious: Yes (Hospitalization, Disabling)
  Sender: FDA-Public Use
  Company Number: US-MERCK-1109USA01359

PATIENT
  Age: 59 Year
  Sex: Female

DRUGS (6)
  1. BONIVA [Suspect]
     Route: 065
     Dates: start: 20071101, end: 20080101
  2. FORTEO [Suspect]
     Route: 065
     Dates: start: 20050601, end: 20051101
  3. FOSAMAX [Suspect]
     Route: 048
     Dates: start: 20070401, end: 20071101
  4. FOSAMAX [Suspect]
     Indication: OSTEOPOROSIS
     Route: 048
     Dates: start: 20020201, end: 20050601
  5. FOSAMAX [Suspect]
     Indication: OSTEOPENIA
     Route: 048
     Dates: start: 20020201, end: 20050601
  6. FOSAMAX [Suspect]
     Route: 048
     Dates: start: 20070401, end: 20071101

REACTIONS (11)
  - RHEUMATOID ARTHRITIS [None]
  - DEVICE FAILURE [None]
  - FEMUR FRACTURE [None]
  - BLOOD CALCIUM INCREASED [None]
  - SKIN PAPILLOMA [None]
  - FRACTURE DELAYED UNION [None]
  - DIABETES MELLITUS [None]
  - FEAR [None]
  - LOW TURNOVER OSTEOPATHY [None]
  - ANAEMIA POSTOPERATIVE [None]
  - ANXIETY [None]
